FAERS Safety Report 4819063-4 (Version None)
Quarter: 2005Q4

REPORT INFORMATION
  Report Type: 
  Country: None (occurrence: None)
  Receive Date: 20051102
  Receipt Date: 20051102
  Transmission Date: 20060501
  Serious: Yes (Other)
  Sender: FDA-Public Use
  Company Number: None

PATIENT
  Sex: Male
  Weight: 80 kg

DRUGS (2)
  1. 25 MCI  TC99M -IV  DYE- [Suspect]
     Indication: CATHETERISATION CARDIAC
     Dosage: ONCE   IV
     Route: 042
     Dates: start: 20050926, end: 20050926
  2. 25 MCI  TC99M -IV  DYE- [Suspect]
     Indication: CORONARY ARTERIAL STENT INSERTION
     Dosage: ONCE   IV
     Route: 042
     Dates: start: 20050926, end: 20050926

REACTIONS (1)
  - RENAL FAILURE [None]
